FAERS Safety Report 10387278 (Version 1)
Quarter: 2014Q1

REPORT INFORMATION
  Report Type: Spontaneous
  Country: US (occurrence: None)
  Receive Date: 20140306
  Receipt Date: 20140306
  Transmission Date: 20141002
  Serious: Yes (Hospitalization)
  Sender: FDA-Public Use
  Company Number: 163-21880-13043616

PATIENT
  Age: 78 Year
  Sex: Female
  Weight: 58.97 kg

DRUGS (14)
  1. REVLIMID (LENALIDOMIDE) (10 MILLIGRAM, CAPSULES) [Suspect]
     Indication: MYELODYSPLASTIC SYNDROME
     Route: 048
     Dates: start: 20130411, end: 20130415
  2. PROCRIT (ERYTHROPOIETIN) [Concomitant]
  3. CYTOMEL (LIOTHYRONINE SODIUM) [Concomitant]
  4. SYNTHROID (LEVOTHYROXINE SODIUM) [Concomitant]
  5. HYDROCODONE (HYDROCODONE) [Concomitant]
  6. PREDNISONE (PREDNISONE) [Concomitant]
  7. TRAMADOL HCL (TRAMADOL HYDROCHLORIDE) [Concomitant]
  8. MVI (MVI) [Concomitant]
  9. OMEPRAZOLE (OMEPRAZOLE) [Concomitant]
  10. GABAPENTIN (GABAPENTIN) [Concomitant]
  11. CARVEDILOL (CARVEDILOL) [Concomitant]
  12. PRBCS (BLOOD CELLS, PACKED HUMAN) [Concomitant]
  13. METAMUCIL (ISPAGHULA) [Concomitant]
  14. HYDROCODONE -ACETAMINOPHEN (VICODIN) [Concomitant]

REACTIONS (1)
  - Pulmonary embolism [None]
